FAERS Safety Report 15099278 (Version 3)
Quarter: 2018Q3

REPORT INFORMATION
  Report Type: Spontaneous
  Country: US (occurrence: US)
  Receive Date: 20180702
  Receipt Date: 20180821
  Transmission Date: 20181010
  Serious: Yes (Other)
  Sender: FDA-Public Use
  Company Number: US-ALLERGAN-1832581US

PATIENT
  Age: 90 Year
  Sex: Male

DRUGS (4)
  1. LINZESS [Suspect]
     Active Substance: LINACLOTIDE
     Dosage: 145 ?G, QD
     Route: 048
     Dates: start: 20180624
  2. LINZESS [Suspect]
     Active Substance: LINACLOTIDE
     Dosage: 217 ?G, UNK (72 MCG + 145 MCG), QD
     Route: 048
     Dates: start: 20180623, end: 20180623
  3. LINZESS [Suspect]
     Active Substance: LINACLOTIDE
     Dosage: 145 ?G, EVERY 2 DAYS
     Route: 048
  4. LINZESS [Suspect]
     Active Substance: LINACLOTIDE
     Indication: CONSTIPATION
     Dosage: 145 ?G, EVERY 3 DAYS
     Route: 048
     Dates: start: 201712

REACTIONS (4)
  - Inappropriate schedule of drug administration [Unknown]
  - Intentional product misuse [Unknown]
  - Arterial disorder [Not Recovered/Not Resolved]
  - Drug ineffective [Unknown]

NARRATIVE: CASE EVENT DATE: 20180623
